FAERS Safety Report 19030815 (Version 2)
Quarter: 2021Q3

REPORT INFORMATION
  Report Type: Spontaneous
  Country: DE (occurrence: DE)
  Receive Date: 20210319
  Receipt Date: 20210709
  Transmission Date: 20211014
  Serious: Yes (Death, Life-Threatening, Hospitalization, Other)
  Sender: FDA-Public Use
  Company Number: DE-ACCORD-219640

PATIENT
  Age: 61 Year
  Sex: Female

DRUGS (3)
  1. BISOPROLOL [Suspect]
     Active Substance: BISOPROLOL
     Dosage: 5 MG
     Route: 048
  2. AMLODIPINE [Suspect]
     Active Substance: AMLODIPINE BESYLATE
     Route: 048
  3. METFORMIN [Suspect]
     Active Substance: METFORMIN HYDROCHLORIDE
     Route: 048

REACTIONS (12)
  - Rhabdomyolysis [Fatal]
  - Cardiogenic shock [Fatal]
  - Compartment syndrome [Fatal]
  - Cardiac arrest [Recovered/Resolved]
  - Intentional overdose [Fatal]
  - Ischaemia [Fatal]
  - Vasoplegia syndrome [Fatal]
  - Toxicity to various agents [Fatal]
  - Circulatory collapse [Fatal]
  - Multiple organ dysfunction syndrome [Fatal]
  - Lactic acidosis [Fatal]
  - Ejection fraction decreased [Fatal]
